FAERS Safety Report 6814039-X (Version None)
Quarter: 2010Q3

REPORT INFORMATION
  Report Type: 
  Country: None (occurrence: None)
  Receive Date: 20100702
  Receipt Date: 20100622
  Transmission Date: 20110219
  Serious: Yes (Other)
  Sender: FDA-Public Use
  Company Number: PHHY2010BR16901

PATIENT
  Sex: Female

DRUGS (1)
  1. ZELMAC [Suspect]
     Dosage: 6 MG TABLETS DAILY
     Route: 048

REACTIONS (6)
  - BOWEL MOVEMENT IRREGULARITY [None]
  - COLONOSCOPY [None]
  - DIVERTICULUM INTESTINAL [None]
  - DRUG INEFFECTIVE [None]
  - ENDOSCOPY [None]
  - ULTRASOUND SCAN [None]
